FAERS Safety Report 5007677-0 (Version None)
Quarter: 2006Q2

REPORT INFORMATION
  Report Type: 
  Country: None (occurrence: None)
  Receive Date: 20060522
  Receipt Date: 20060410
  Transmission Date: 20061013
  Serious: Yes (Disabling)
  Sender: FDA-Public Use
  Company Number: 2006AP01730

PATIENT
  Sex: Female

DRUGS (12)
  1. ARIMIDEX [Suspect]
     Indication: BREAST CANCER METASTATIC
     Route: 048
     Dates: start: 20050922, end: 20060305
  2. VOLATAREN SR [Concomitant]
     Indication: CANCER PAIN
     Route: 048
     Dates: start: 20050917
  3. MUCOSTA [Concomitant]
     Indication: PROPHYLAXIS AGAINST GASTROINTESTINAL ULCER
     Route: 048
     Dates: start: 20050917
  4. AREDIA [Concomitant]
     Indication: METASTASES TO BONE
     Route: 042
     Dates: start: 20050924, end: 20060221
  5. TENORMIN [Concomitant]
     Indication: HYPERTENSION
     Route: 048
  6. COVERSYL [Concomitant]
     Indication: HYPERTENSION
     Route: 048
  7. NORVASC [Concomitant]
     Indication: HYPERTENSION
     Route: 048
  8. CYCLOPHOSPHAMIDE [Concomitant]
  9. ENDOXAN [Concomitant]
  10. FLUOROURACIL [Concomitant]
  11. TAMOXIFEN CITRATE [Concomitant]
  12. TEGAFUR [Concomitant]

REACTIONS (3)
  - LYMPHANGIOSIS CARCINOMATOSA [None]
  - MAXIMAL VOLUNTARY VENTILATION [None]
  - VITAL CAPACITY ABNORMAL [None]
